FAERS Safety Report 14194541 (Version 1)
Quarter: 2017Q4

REPORT INFORMATION
  Report Type: Spontaneous
  Country: US (occurrence: US)
  Receive Date: 20171115
  Receipt Date: 20171115
  Transmission Date: 20180321
  Serious: Yes (Disabling)
  Sender: FDA-Public Use
  Company Number: None

PATIENT
  Sex: Female
  Weight: 54 kg

DRUGS (9)
  1. VITAMIN E [Concomitant]
     Active Substance: .ALPHA.-TOCOPHEROL
  2. DUPIXENT [Concomitant]
     Active Substance: DUPILUMAB
  3. ZYRTEC [Concomitant]
     Active Substance: CETIRIZINE HYDROCHLORIDE
  4. TOPICORT [Suspect]
     Active Substance: DESOXIMETASONE
     Indication: DERMATITIS ATOPIC
     Route: 061
  5. VANOS [Suspect]
     Active Substance: FLUOCINONIDE
     Indication: DERMATITIS ATOPIC
  6. PAXIL [Concomitant]
     Active Substance: PAROXETINE HYDROCHLORIDE
  7. GABAPENTIN. [Concomitant]
     Active Substance: GABAPENTIN
  8. MULTI-VITAMIN [Concomitant]
     Active Substance: .ALPHA.-TOCOPHEROL ACETATE, DL-\ASCORBIC ACID\CYANOCOBALAMIN\FLUORIDE ION\FOLIC ACID\NIACIN\PYRIDOXINE\RIBOFLAVIN\THIAMINE\VITAMIN A\VITAMIN D
  9. NALTREXONE [Concomitant]
     Active Substance: NALTREXONE

REACTIONS (9)
  - Drug ineffective [None]
  - Pruritus [None]
  - Alopecia [None]
  - Impaired work ability [None]
  - Neuralgia [None]
  - Lymphadenopathy [None]
  - Eczema [None]
  - Red man syndrome [None]
  - Peripheral swelling [None]

NARRATIVE: CASE EVENT DATE: 20160901
